FAERS Safety Report 5798813-7 (Version None)
Quarter: 2008Q2

REPORT INFORMATION
  Report Type: 
  Country: None (occurrence: None)
  Receive Date: 20080620
  Receipt Date: 20080425
  Transmission Date: 20081010
  Serious: Yes (Other)
  Sender: FDA-Public Use
  Company Number: PHEH2008US04128

PATIENT
  Age: 41 Year
  Sex: Male

DRUGS (1)
  1. FOCALIN XR [Suspect]
     Dosage: 10 MG
     Dates: start: 20080326

REACTIONS (2)
  - ADVERSE DRUG REACTION [None]
  - ANGER [None]
